FAERS Safety Report 12717426 (Version 1)
Quarter: 2016Q3

REPORT INFORMATION
  Report Type: Report from Study
  Country: KR (occurrence: KR)
  Receive Date: 20160906
  Receipt Date: 20160906
  Transmission Date: 20161109
  Serious: Yes (Hospitalization, Other)
  Sender: FDA-Public Use
  Company Number: KR-GLAXOSMITHKLINE-KR2016GSK124769

PATIENT
  Age: 69 Year
  Sex: Male
  Weight: 44 kg

DRUGS (9)
  1. SYNATURA [Concomitant]
     Indication: ASTHMA
     Dosage: 15 ML, UNK
     Route: 048
     Dates: start: 20160530, end: 20160821
  2. NITROGLYCERIN. [Concomitant]
     Active Substance: NITROGLYCERIN
     Dosage: UNK, PRN
     Route: 060
     Dates: start: 20160613
  3. FLUTICASONE FUROATE + VILANTEROL TRIFENATATE [Suspect]
     Active Substance: FLUTICASONE FUROATE\VILANTEROL TRIFENATATE
     Indication: ASTHMA
     Dosage: 25 MG, QD
     Route: 055
     Dates: start: 20160530
  4. ERDOSTEINE [Concomitant]
     Active Substance: ERDOSTEINE
     Indication: ASTHMA
     Dosage: 300 MG, BID
     Route: 048
     Dates: start: 20160418
  5. NEWRABELL [Concomitant]
     Indication: GASTROOESOPHAGEAL REFLUX DISEASE
     Dosage: 10 MG, QD
     Route: 048
     Dates: start: 20160502, end: 20160724
  6. BAYER ASPIRIN [Concomitant]
     Active Substance: ASPIRIN
     Indication: ANGINA UNSTABLE
     Dosage: 100 MG, QD
     Route: 048
     Dates: start: 20160613
  7. DEXILANT DR [Concomitant]
     Indication: GASTROOESOPHAGEAL REFLUX DISEASE
     Dosage: 30 MG, QD
     Route: 048
     Dates: start: 20160706
  8. ANYCOUGH [Concomitant]
     Active Substance: THEOBROMINE
     Indication: ASTHMA
     Dosage: 300 MG, BID
     Route: 048
     Dates: start: 20160530, end: 20160821
  9. LIPITOR [Concomitant]
     Active Substance: ATORVASTATIN CALCIUM
     Indication: HYPERLIPIDAEMIA
     Dosage: 40 MG, QD
     Route: 048
     Dates: start: 20160706

REACTIONS (1)
  - Angina pectoris [Recovered/Resolved]

NARRATIVE: CASE EVENT DATE: 20160704
